FAERS Safety Report 8960357 (Version 1)
Quarter: 2012Q4

REPORT INFORMATION
  Report Type: 
  Country: VN (occurrence: VN)
  Receive Date: 20121211
  Receipt Date: 20121211
  Transmission Date: 20130627
  Serious: Yes (Hospitalization)
  Sender: FDA-Public Use
  Company Number: VN-BAYER-2012-129951

PATIENT
  Age: 58 Year
  Sex: Female

DRUGS (1)
  1. ULTRAVIST [Suspect]
     Indication: CT SCAN
     Dosage: 50 ml, ONCE
     Route: 042
     Dates: start: 20121206, end: 20121206

REACTIONS (3)
  - Dyspnoea [Not Recovered/Not Resolved]
  - Pulse pressure decreased [None]
  - Vomiting [Not Recovered/Not Resolved]
